FAERS Safety Report 16771946 (Version 2)
Quarter: 2019Q4

REPORT INFORMATION
  Report Type: Spontaneous
  Country: US (occurrence: US)
  Receive Date: 20190904
  Receipt Date: 20191003
  Transmission Date: 20200122
  Serious: Yes (Other)
  Sender: FDA-Public Use
  Company Number: US-SUNOVION-2019SUN003634

PATIENT
  Sex: Female
  Weight: 72.56 kg

DRUGS (1)
  1. APTIOM [Suspect]
     Active Substance: ESLICARBAZEPINE ACETATE
     Indication: PARTIAL SEIZURES
     Dosage: 1200 MG, QD
     Route: 048
     Dates: start: 20190823

REACTIONS (1)
  - Seizure [Unknown]
